FAERS Safety Report 18343341 (Version 1)
Quarter: 2020Q4

REPORT INFORMATION
  Report Type: Spontaneous
  Country: US (occurrence: US)
  Receive Date: 20201004
  Receipt Date: 20201004
  Transmission Date: 20210113
  Serious: Yes (Other)
  Sender: FDA-Public Use
  Company Number: None

PATIENT
  Age: 44 Year
  Sex: Female
  Weight: 112.5 kg

DRUGS (9)
  1. AIMOVIG [Suspect]
     Active Substance: ERENUMAB-AOOE
     Indication: MIGRAINE
     Dates: start: 20181115, end: 20200915
  2. SERTRALINE [Concomitant]
     Active Substance: SERTRALINE HYDROCHLORIDE
  3. TIZANIDINE 4 MG [Concomitant]
     Active Substance: TIZANIDINE
  4. BIRTH CONTROL PILLS (CONTINUOUS) [Concomitant]
  5. SUMATRIPTAN INJECTION PRN [Concomitant]
  6. SUDAFED [Concomitant]
     Active Substance: PSEUDOEPHEDRINE HYDROCHLORIDE
  7. AIMOVIG [Concomitant]
     Active Substance: ERENUMAB-AOOE
  8. HYDROXYZINE 50 MG [Concomitant]
  9. TORADOL [Concomitant]
     Active Substance: KETOROLAC TROMETHAMINE

REACTIONS (3)
  - Insomnia [None]
  - Drug interaction [None]
  - Arthralgia [None]

NARRATIVE: CASE EVENT DATE: 20200301
